FAERS Safety Report 17269872 (Version 1)
Quarter: 2020Q1

REPORT INFORMATION
  Report Type: Spontaneous
  Country: FR (occurrence: FR)
  Receive Date: 20200114
  Receipt Date: 20200114
  Transmission Date: 20200409
  Serious: Yes (Other)
  Sender: FDA-Public Use
  Company Number: FR-009507513-2001FRA001247

PATIENT
  Age: 25 Year
  Sex: Female

DRUGS (8)
  1. NEXPLANON [Suspect]
     Active Substance: ETONOGESTREL
     Indication: CONTRACEPTION
     Dosage: 1 DOSAGE FORM, ONCE, IMPLANT FOR SUBCUTANEOUS USE, 1 (TOTAL)
     Route: 058
     Dates: start: 20190911
  2. TERCIAN [Concomitant]
     Active Substance: CYAMEMAZINE
     Dosage: 50 GTT DROPS, 1/12 MILLILITRE
     Route: 048
  3. LEPTICUR [Concomitant]
     Active Substance: TROPATEPINE HYDROCHLORIDE
     Dosage: 2 DOSAGE FORM, QD
     Route: 048
  4. POLYETHYLENE GLYCOL [Concomitant]
     Active Substance: POLYETHYLENE GLYCOLS
     Dosage: NOT PROVIDED
     Route: 048
  5. RIVOTRIL [Concomitant]
     Active Substance: CLONAZEPAM
     Dosage: 10 GTT DROPS, 1/12 MILLILITRE
     Route: 048
  6. MICROPAKINE [Concomitant]
     Active Substance: VALPROATE SODIUM
     Dosage: 6 DOSAGE FORM, QD
     Route: 048
  7. CLOPIXOL DROPS [Concomitant]
     Active Substance: ZUCLOPENTHIXOL ACETATE
     Dosage: 140 GTT DROPS, QD,  1/12 MILLILITRE
     Route: 048
  8. URBANYL [Concomitant]
     Active Substance: CLOBAZAM
     Dosage: 4.5 DOSAGE FORM, QD
     Route: 048

REACTIONS (1)
  - Behaviour disorder [Not Recovered/Not Resolved]

NARRATIVE: CASE EVENT DATE: 20190914
